FAERS Safety Report 9566875 (Version 1)
Quarter: 2013Q3

REPORT INFORMATION
  Report Type: Spontaneous
  Country: US (occurrence: US)
  Receive Date: 20130930
  Receipt Date: 20130930
  Transmission Date: 20140515
  Serious: No
  Sender: FDA-Public Use
  Company Number: US-AMGEN-USASP2012060614

PATIENT
  Sex: Male

DRUGS (4)
  1. ENBREL [Suspect]
     Indication: RHEUMATOID ARTHRITIS
     Dosage: 50 MG, QWK
     Route: 058
  2. PREDNISONE [Concomitant]
     Dosage: 2.5 MG, UNK
  3. ASPIRIN [Concomitant]
     Dosage: LOW 81 MG, UNK
  4. LEVOTHYROXIN [Concomitant]
     Dosage: 25 MUG, UNK

REACTIONS (1)
  - Injection site bruising [Unknown]
